FAERS Safety Report 13820187 (Version 1)
Quarter: 2017Q3

REPORT INFORMATION
  Report Type: Spontaneous
  Country: DE (occurrence: DE)
  Receive Date: 20170801
  Receipt Date: 20170801
  Transmission Date: 20171127
  Serious: Yes (Other)
  Sender: FDA-Public Use
  Company Number: DE-PFIZER INC-2017264253

PATIENT
  Age: 69 Year
  Sex: Male
  Weight: 85 kg

DRUGS (7)
  1. MARCUMAR [Concomitant]
     Active Substance: PHENPROCOUMON
     Indication: ATRIAL FIBRILLATION
     Dosage: UNK
     Route: 048
     Dates: start: 2007, end: 2010
  2. SORTIS [Suspect]
     Active Substance: ATORVASTATIN
     Indication: HYPERCHOLESTEROLAEMIA
  3. ISDN [Concomitant]
     Indication: CORONARY ARTERY DISEASE
     Dosage: 50, UNK, 1X/DAY
     Route: 048
     Dates: start: 2002, end: 2017
  4. VALSARTAN. [Concomitant]
     Active Substance: VALSARTAN
     Indication: HYPERTENSION
     Dosage: 160, UNK, 1X/DAY
     Route: 048
     Dates: start: 2008, end: 2017
  5. SORTIS [Suspect]
     Active Substance: ATORVASTATIN
     Indication: CEREBRAL ARTERY OCCLUSION
  6. SORTIS [Suspect]
     Active Substance: ATORVASTATIN
     Indication: CORONARY ARTERY DISEASE
     Dosage: 20 MG1X/DAY
     Route: 048
     Dates: start: 2002, end: 201706
  7. ASPIRIN. [Concomitant]
     Active Substance: ASPIRIN
     Indication: CORONARY ARTERY DISEASE
     Dosage: 100, UNK, 1X/DAY
     Route: 048
     Dates: start: 2010, end: 2017

REACTIONS (4)
  - Tendonitis [Recovered/Resolved]
  - Tendon rupture [Recovered/Resolved]
  - Tendon rupture [Recovered/Resolved]
  - Tendon rupture [Recovered/Resolved]

NARRATIVE: CASE EVENT DATE: 2005
